FAERS Safety Report 18510272 (Version 2)
Quarter: 2020Q4

REPORT INFORMATION
  Report Type: Spontaneous
  Country: ES (occurrence: ES)
  Receive Date: 20201117
  Receipt Date: 20201118
  Transmission Date: 20210114
  Serious: Yes (Hospitalization)
  Sender: FDA-Public Use
  Company Number: ES-009507513-2011ESP009655

PATIENT
  Age: 13 Year
  Sex: Female
  Weight: 50 kg

DRUGS (5)
  1. VORICONAZOLE. [Concomitant]
     Active Substance: VORICONAZOLE
     Dosage: SUBSEQUENTLY 4 MG/KG/12H FOR 14 DAYS.
     Route: 042
     Dates: start: 20200605, end: 20200619
  2. VORICONAZOLE. [Concomitant]
     Active Substance: VORICONAZOLE
     Dosage: UNK
     Dates: start: 20200904
  3. VORICONAZOLE. [Concomitant]
     Active Substance: VORICONAZOLE
     Dosage: SWITCH TO ORAL ROUTE (200 MG/12H).
     Route: 048
     Dates: start: 20200620, end: 20200805
  4. POSACONAZOLE [Suspect]
     Active Substance: POSACONAZOLE
     Indication: BRONCHOPULMONARY ASPERGILLOSIS
     Route: 048
     Dates: start: 20200805, end: 20200903
  5. VORICONAZOLE. [Concomitant]
     Active Substance: VORICONAZOLE
     Indication: BRONCHOPULMONARY ASPERGILLOSIS
     Dosage: 6 MG/KG/12H X 1DAY.
     Route: 042
     Dates: start: 20200604, end: 20200605

REACTIONS (3)
  - Eye oedema [Recovered/Resolved]
  - Bronchopulmonary aspergillosis [Recovered/Resolved]
  - Product use issue [Unknown]

NARRATIVE: CASE EVENT DATE: 20200805
